FAERS Safety Report 6933775-8 (Version None)
Quarter: 2010Q3

REPORT INFORMATION
  Report Type: 
  Country: None (occurrence: None)
  Receive Date: 20100820
  Receipt Date: 20100810
  Transmission Date: 20110219
  Serious: Yes (Other)
  Sender: FDA-Public Use
  Company Number: US-PFIZER INC-2008021170

PATIENT
  Sex: Male
  Weight: 77.1 kg

DRUGS (6)
  1. CHANTIX [Suspect]
     Indication: SMOKING CESSATION THERAPY
     Dosage: 0.5 MG, UNK
     Route: 048
     Dates: start: 20080219
  2. CHANTIX [Suspect]
     Dosage: 0.5 MG, DAILY
     Route: 048
     Dates: start: 20080201, end: 20080201
  3. CHANTIX [Suspect]
     Dosage: 0.5 MG, 1X/DAY
     Dates: start: 20100701
  4. CHANTIX [Suspect]
     Dosage: 1 MG, 2X/DAY
     Dates: start: 20100101
  5. ASPIRIN W/CODEINE [Suspect]
     Indication: FIBROMYALGIA
     Dosage: UNK
  6. FLURAZEPAM [Concomitant]
     Dosage: UNK

REACTIONS (7)
  - ARTHRALGIA [None]
  - DIZZINESS [None]
  - FEELING ABNORMAL [None]
  - INFLUENZA [None]
  - MUSCLE SPASMS [None]
  - PAIN IN EXTREMITY [None]
  - SOMNOLENCE [None]
